FAERS Safety Report 12291890 (Version 2)
Quarter: 2016Q2

REPORT INFORMATION
  Report Type: Report from Study
  Country: CA (occurrence: CA)
  Receive Date: 20160421
  Receipt Date: 20160511
  Transmission Date: 20160815
  Serious: Yes (Hospitalization)
  Sender: FDA-Public Use
  Company Number: CA-ABBVIE-16K-028-1607938-00

PATIENT
  Sex: Male

DRUGS (1)
  1. HUMIRA [Suspect]
     Active Substance: ADALIMUMAB
     Indication: CROHN^S DISEASE
     Route: 058
     Dates: start: 20120614

REACTIONS (6)
  - Pancreas infection [Unknown]
  - Faeces soft [Unknown]
  - Blood glucose decreased [Recovered/Resolved]
  - Pneumonia [Recovering/Resolving]
  - Syncope [Recovered/Resolved]
  - Frequent bowel movements [Unknown]

NARRATIVE: CASE EVENT DATE: 2016
